FAERS Safety Report 4901756-1 (Version None)
Quarter: 2006Q1

REPORT INFORMATION
  Report Type: 
  Country: None (occurrence: None)
  Receive Date: 20060203
  Receipt Date: 20060203
  Transmission Date: 20060701
  Serious: Yes (Hospitalization, Other)
  Sender: FDA-Public Use
  Company Number: None

PATIENT
  Age: 68 Year
  Sex: Female

DRUGS (10)
  1. CISPLATIN [Suspect]
     Indication: TONGUE NEOPLASM MALIGNANT STAGE UNSPECIFIED
     Dosage: 183 MG/DAY IV
     Route: 042
     Dates: start: 20020529, end: 20020529
  2. FLUOROURACIL [Suspect]
     Indication: TONGUE NEOPLASM MALIGNANT STAGE UNSPECIFIED
     Dosage: 1830 MG/DAY IV
     Route: 042
     Dates: start: 20020529, end: 20020603
  3. KYTRIL [Concomitant]
  4. DECADRON SRC [Concomitant]
  5. CEFAZOLIN [Concomitant]
  6. MAGNESIUM SULFATE [Concomitant]
  7. COMPAZINE [Concomitant]
  8. POTASSIUM CHLORIDE [Concomitant]
  9. TYLENOL [Concomitant]
  10. LASIX [Concomitant]

REACTIONS (17)
  - ATRIAL FIBRILLATION [None]
  - BLOOD CHLORIDE DECREASED [None]
  - BLOOD MAGNESIUM DECREASED [None]
  - BLOOD SODIUM DECREASED [None]
  - CONFUSIONAL STATE [None]
  - CULTURE URINE POSITIVE [None]
  - DISORIENTATION [None]
  - EJECTION FRACTION DECREASED [None]
  - ERYTHEMA [None]
  - ESCHERICHIA INFECTION [None]
  - HEART RATE IRREGULAR [None]
  - HYPOKALAEMIA [None]
  - MENTAL STATUS CHANGES [None]
  - RASH MACULAR [None]
  - RENAL FAILURE ACUTE [None]
  - STRIDOR [None]
  - WOUND DRAINAGE [None]
